FAERS Safety Report 5237613-3 (Version None)
Quarter: 2007Q1

REPORT INFORMATION
  Report Type: 
  Country: None (occurrence: None)
  Receive Date: 20070213
  Receipt Date: 20070130
  Transmission Date: 20070707
  Serious: Yes (Other)
  Sender: FDA-Public Use
  Company Number: CH-AMGEN-UK209131

PATIENT

DRUGS (1)
  1. NEULASTA [Suspect]

REACTIONS (5)
  - ACUTE RESPIRATORY DISTRESS SYNDROME [None]
  - DERMO-HYPODERMITIS [None]
  - NEUTROPHILIA [None]
  - PYREXIA [None]
  - SHOCK [None]
